FAERS Safety Report 21031372 (Version 2)
Quarter: 2022Q3

REPORT INFORMATION
  Report Type: Spontaneous
  Country: TR (occurrence: TR)
  Receive Date: 20220701
  Receipt Date: 20220801
  Transmission Date: 20221026
  Serious: Yes (Hospitalization)
  Sender: FDA-Public Use
  Company Number: TR-NOVOPROD-931452

PATIENT
  Sex: Female
  Weight: 1.9 kg

DRUGS (6)
  1. LEVEMIR [Suspect]
     Active Substance: INSULIN DETEMIR
     Indication: Gestational diabetes
     Dosage: 14 IU, QD
     Route: 064
     Dates: start: 20220303, end: 20220502
  2. OKSAPAR [Concomitant]
     Indication: Antiplatelet therapy
  3. OKSAPAR [Concomitant]
     Indication: High risk pregnancy
     Dosage: 6000 (UNITS NOT REPORTED)
     Route: 064
  4. ASPIRIN [Concomitant]
     Active Substance: ASPIRIN
     Indication: Antiplatelet therapy
  5. ASPIRIN [Concomitant]
     Active Substance: ASPIRIN
     Indication: High risk pregnancy
     Dosage: 100 MG
     Route: 064
  6. ENDOL [FLURBIPROFEN] [Concomitant]
     Indication: High risk pregnancy
     Dosage: UNK
     Route: 064

REACTIONS (2)
  - Premature baby [Recovered/Resolved]
  - Foetal exposure during pregnancy [Recovered/Resolved]

NARRATIVE: CASE EVENT DATE: 20220303
